FAERS Safety Report 4368991-5 (Version None)
Quarter: 2004Q2

REPORT INFORMATION
  Report Type: 
  Country: None (occurrence: None)
  Receive Date: 20040603
  Receipt Date: 20040525
  Transmission Date: 20050107
  Serious: Yes (Hospitalization)
  Sender: FDA-Public Use
  Company Number: PHEH2004US05801

PATIENT
  Age: 80 Year
  Sex: Female

DRUGS (3)
  1. STARLIX [Suspect]
     Indication: DIABETES MELLITUS
     Dosage: 120 MG, TID
     Route: 048
     Dates: start: 20030101
  2. AVANDIA [Suspect]
     Indication: DIABETES MELLITUS
     Dosage: 500 MG, BID
     Route: 048
  3. METFORMIN HCL [Suspect]
     Dosage: 50 MG, BID
     Route: 048
     Dates: start: 20030101

REACTIONS (2)
  - BLOOD GLUCOSE DECREASED [None]
  - LOSS OF CONSCIOUSNESS [None]
